FAERS Safety Report 17692379 (Version 3)
Quarter: 2020Q4

REPORT INFORMATION
  Report Type: Spontaneous
  Country: US (occurrence: US)
  Receive Date: 20200422
  Receipt Date: 20201110
  Transmission Date: 20210113
  Serious: No
  Sender: FDA-Public Use
  Company Number: US-PFIZER INC-2019470530

PATIENT
  Age: 54 Year
  Sex: Female

DRUGS (4)
  1. LORBRENA [Suspect]
     Active Substance: LORLATINIB
     Indication: POST PROCEDURAL COMPLICATION
     Dosage: 25 MG, UNK
  2. LORBRENA [Suspect]
     Active Substance: LORLATINIB
     Indication: IRON DEFICIENCY ANAEMIA
     Dosage: 100 MG, 1X/DAY [25 MG TABLET TAKE 4 TABLETS BY MOUTH ONCE DAILY WITH OR WITHOUT FOOD]
     Route: 048
  3. LORBRENA [Suspect]
     Active Substance: LORLATINIB
     Indication: LUNG NEOPLASM MALIGNANT
     Dosage: 75 MG, 1X/DAY [25 MG TAKE 3 TABLETS BY MOUTH ONCE DAILY WITH OR WITHOUT FOOD]
     Route: 048
  4. LORBRENA [Suspect]
     Active Substance: LORLATINIB
     Dosage: 100 MG

REACTIONS (2)
  - Iron deficiency anaemia [Unknown]
  - Product dose omission issue [Unknown]

NARRATIVE: CASE EVENT DATE: 20191111
